FAERS Safety Report 7088907-0 (Version None)
Quarter: 2010Q4

REPORT INFORMATION
  Report Type: 
  Country: None (occurrence: None)
  Receive Date: 20101108
  Receipt Date: 20101026
  Transmission Date: 20110411
  Serious: Yes (Other)
  Sender: FDA-Public Use
  Company Number: AU-ELI_LILLY_AND_COMPANY-AU201010000004

PATIENT
  Sex: Female
  Weight: 83.4 kg

DRUGS (19)
  1. CYMBALTA [Suspect]
     Indication: DEPRESSION
     Dosage: 30 MG, EACH MORNING
     Route: 048
     Dates: start: 20100802
  2. CYMBALTA [Suspect]
     Dosage: 60 MG, EACH MORNING
     Route: 048
     Dates: end: 20100914
  3. ATROVENT [Concomitant]
     Dosage: UNK, 2/D
     Route: 045
  4. AVAPRO [Concomitant]
     Dosage: 300 MG, EACH MORNING
  5. DIAGESIC [Concomitant]
     Dosage: 2 D/F, AS NEEDED
  6. FRUSEMIDE [Concomitant]
     Dosage: 80 MG, EACH MORNING
  7. GLUCAGEN [Concomitant]
     Indication: HYPOGLYCAEMIA
     Dosage: 1 IU, AS NEEDED
  8. LIPITOR [Concomitant]
     Dosage: 80 MG, DAILY (1/D)
  9. NILSTAT [Concomitant]
     Dosage: 100000 IU, AS NEEDED
     Route: 048
  10. NORSPAN [Concomitant]
     Dosage: 1 D/F, WEEKLY (1/W)
     Route: 062
  11. NOTEN [Concomitant]
     Dosage: 25 MG, DAILY (1/D)
  12. NOVOMIX30 [Concomitant]
     Dosage: 20 U, EACH MORNING
  13. NOVOMIX30 [Concomitant]
     Dosage: 18 U, EACH EVENING
  14. LEVOTHYROXINE SODIUM [Concomitant]
     Dosage: 0.15 MG, EACH MORNING
  15. LEVOTHYROXINE SODIUM [Concomitant]
     Dosage: 0.2 MG, EACH MORNING
  16. PANAMAX [Concomitant]
     Dosage: 1000 MG, AS NEEDED
  17. PREDNEFRIN FORTE [Concomitant]
     Dosage: 1 GTT, DAILY (1/D)
     Route: 047
  18. SOFRAMYCIN [Concomitant]
     Dosage: UNK, AS NEEDED
  19. TEMAZE [Concomitant]
     Dosage: 20 MG, AS NEEDED

REACTIONS (7)
  - ALANINE AMINOTRANSFERASE INCREASED [None]
  - ASPARTATE AMINOTRANSFERASE INCREASED [None]
  - GAMMA-GLUTAMYLTRANSFERASE INCREASED [None]
  - MALAISE [None]
  - OFF LABEL USE [None]
  - RED BLOOD CELL SEDIMENTATION RATE INCREASED [None]
  - TREMOR [None]
